FAERS Safety Report 25401127 (Version 1)
Quarter: 2025Q2

REPORT INFORMATION
  Report Type: Spontaneous
  Country: US (occurrence: US)
  Receive Date: 20250605
  Receipt Date: 20250605
  Transmission Date: 20250717
  Serious: No
  Sender: ITALFARMACO SPA
  Company Number: US-ITALFARMACO SPA-2178100

PATIENT
  Age: 16 Year
  Sex: Male
  Weight: 57 kg

DRUGS (7)
  1. DUVYZAT [Suspect]
     Active Substance: GIVINOSTAT
     Indication: Duchenne muscular dystrophy
     Dates: start: 20241004
  2. HYDROCORTISONE rectal enema [Concomitant]
  3. DEFLAZACORT [Concomitant]
     Active Substance: DEFLAZACORT
  4. EPLERENONE [Concomitant]
     Active Substance: EPLERENONE
  5. LISINOPRIL [Concomitant]
     Active Substance: LISINOPRIL
  6. METOPROLOL TARTRATE [Concomitant]
     Active Substance: METOPROLOL TARTRATE
  7. VITAMIN D3 [Concomitant]
     Active Substance: CHOLECALCIFEROL

REACTIONS (1)
  - Gastrointestinal disorder [Unknown]
